FAERS Safety Report 5621260-5 (Version None)
Quarter: 2008Q1

REPORT INFORMATION
  Report Type: 
  Country: None (occurrence: None)
  Receive Date: 20080114
  Receipt Date: 20070507
  Transmission Date: 20080703
  Serious: Yes (Hospitalization)
  Sender: FDA-Public Use
  Company Number: A03200702920

PATIENT
  Age: 73 Year
  Sex: Male
  Weight: 85.26 kg

DRUGS (4)
  1. PLAVIX [Suspect]
     Indication: CORONARY ARTERIAL STENT INSERTION
     Dosage: 75 MG QD - ORAL
     Route: 048
     Dates: start: 20060401, end: 20070122
  2. PLAVIX [Suspect]
     Indication: CORONARY ARTERIAL STENT INSERTION
     Dosage: 75 MG QD - ORAL
     Route: 048
     Dates: start: 20070101
  3. ASPIRIN [Suspect]
     Indication: CORONARY ARTERIAL STENT INSERTION
     Dosage: 81 MG QD - ORAL
     Route: 048
     Dates: end: 20070122
  4. ASPIRIN [Suspect]
     Indication: CORONARY ARTERY DISEASE
     Dosage: 81 MG QD - ORAL
     Route: 048
     Dates: end: 20070122

REACTIONS (2)
  - ANGINA PECTORIS [None]
  - ELECTROCARDIOGRAM ST SEGMENT ELEVATION [None]
